FAERS Safety Report 10108946 (Version 3)
Quarter: 2014Q2

REPORT INFORMATION
  Report Type: Spontaneous
  Country: FR (occurrence: FR)
  Receive Date: 20140425
  Receipt Date: 20140429
  Transmission Date: 20141212
  Serious: Yes (Hospitalization, Other)
  Sender: FDA-Public Use
  Company Number: FR-JNJFOC-20140401670

PATIENT
  Age: 27 Year
  Sex: Male
  Weight: 60 kg

DRUGS (4)
  1. REMICADE [Suspect]
     Indication: PSORIASIS
     Route: 042
     Dates: start: 20121204, end: 20130719
  2. ENBREL [Suspect]
     Indication: PSORIASIS
     Route: 058
     Dates: start: 201310, end: 20131219
  3. ENBREL [Suspect]
     Indication: PSORIASIS
     Route: 058
     Dates: start: 201004, end: 201212
  4. METHOTREXATE [Concomitant]
     Route: 058
     Dates: start: 200902, end: 200908

REACTIONS (4)
  - Hodgkin^s disease [Not Recovered/Not Resolved]
  - Paradoxical drug reaction [Unknown]
  - Psoriasis [Unknown]
  - Lymphadenopathy [Not Recovered/Not Resolved]
